FAERS Safety Report 9413007 (Version 1)
Quarter: 2013Q3

REPORT INFORMATION
  Report Type: Spontaneous
  Country: US (occurrence: US)
  Receive Date: 20130722
  Receipt Date: 20130722
  Transmission Date: 20140515
  Serious: Yes (Other)
  Sender: FDA-Public Use
  Company Number: US-GLAXOSMITHKLINE-A1033111A

PATIENT
  Age: 27 Year
  Sex: Male

DRUGS (3)
  1. LAMICTAL XR [Suspect]
     Indication: EPILEPSY
     Dosage: 250MG TWICE PER DAY
     Route: 048
     Dates: start: 201305
  2. LAMOTRIGINE [Suspect]
     Indication: EPILEPSY
     Dosage: 150MG PER DAY
     Route: 048
     Dates: start: 20130104, end: 201305
  3. LEVETIRACETAM [Concomitant]

REACTIONS (2)
  - Seizure cluster [Recovered/Resolved]
  - Drug ineffective [Unknown]
